FAERS Safety Report 4775265-7 (Version None)
Quarter: 2005Q3

REPORT INFORMATION
  Report Type: 
  Country: None (occurrence: None)
  Receive Date: 20050921
  Receipt Date: 20050921
  Transmission Date: 20060218
  Serious: Yes (Hospitalization)
  Sender: FDA-Public Use
  Company Number: None

PATIENT
  Age: 61 Year
  Sex: Female
  Weight: 81.6475 kg

DRUGS (7)
  1. ERLOTINIB [Suspect]
     Indication: BREAST CANCER METASTATIC
     Dosage: 150 MG PO
     Route: 048
     Dates: start: 20050506
  2. DOCETAXEL [Suspect]
     Indication: BREAST CANCER METASTATIC
     Dosage: 35 MG/M2 IV
     Route: 042
     Dates: start: 20050506
  3. PERCOSET [Concomitant]
  4. CLARINEX [Concomitant]
  5. IMODIUM [Concomitant]
  6. PAREGORIC [Concomitant]
  7. NEXIUM [Concomitant]

REACTIONS (1)
  - HYPOXIA [None]
